FAERS Safety Report 8313565-4 (Version None)
Quarter: 2012Q2

REPORT INFORMATION
  Report Type: 
  Country: None (occurrence: None)
  Receive Date: 20120425
  Receipt Date: 20120425
  Transmission Date: 20120825
  Serious: Yes (Other)
  Sender: FDA-Public Use
  Company Number: None

PATIENT
  Age: 68 Year
  Sex: Female
  Weight: 109.7705 kg

DRUGS (2)
  1. ATORVASTATIN [Suspect]
     Indication: BLOOD TRIGLYCERIDES INCREASED
     Dosage: 1 TABLET EVERY DAY BY MOUTH
     Route: 048
     Dates: start: 20120125, end: 20120225
  2. ATORVASTATIN [Suspect]
     Indication: LOW DENSITY LIPOPROTEIN INCREASED
     Dosage: 1 TABLET EVERY DAY BY MOUTH
     Route: 048
     Dates: start: 20120125, end: 20120225

REACTIONS (10)
  - DRY THROAT [None]
  - COUGH [None]
  - BLOOD GLUCOSE INCREASED [None]
  - DIZZINESS [None]
  - PALPITATIONS [None]
  - BLOOD PRESSURE INCREASED [None]
  - VISION BLURRED [None]
  - MIDDLE INSOMNIA [None]
  - DRY MOUTH [None]
  - DYSPNOEA [None]
